FAERS Safety Report 9651888 (Version 1)
Quarter: 2013Q4

REPORT INFORMATION
  Report Type: Spontaneous
  Country: US (occurrence: None)
  Receive Date: 20131028
  Receipt Date: 20131028
  Transmission Date: 20140711
  Serious: Yes (Hospitalization)
  Sender: FDA-Public Use
  Company Number: None

PATIENT
  Age: 78 Year
  Sex: Male
  Weight: 91.2 kg

DRUGS (15)
  1. VALPROIC ACID [Suspect]
     Indication: ABNORMAL BEHAVIOUR
     Route: 048
     Dates: start: 20110603
  2. AMLODIPINE [Concomitant]
  3. ASPIRIN/ DIPYRIDAMOLE [Concomitant]
  4. CALCIUM CARBONATE [Concomitant]
  5. CLONIDINE [Concomitant]
  6. DOCUSATE [Concomitant]
  7. ISOSORBIDE MONONITRATE [Concomitant]
  8. FUROSEMIDE [Concomitant]
  9. LISINOPRIL [Concomitant]
  10. METOPROLOL [Concomitant]
  11. PHENYTOIN [Concomitant]
  12. SENNA [Concomitant]
  13. QUETIAPINE [Concomitant]
  14. SIMVASTATIN [Concomitant]
  15. TRAVOPROST [Concomitant]

REACTIONS (4)
  - Hyperammonaemia [None]
  - Mental status changes [None]
  - Hypotension [None]
  - Somnolence [None]
